FAERS Safety Report 4717683-9 (Version None)
Quarter: 2005Q3

REPORT INFORMATION
  Report Type: 
  Country: None (occurrence: None)
  Receive Date: 20050715
  Receipt Date: 20050629
  Transmission Date: 20060218
  Serious: Yes (Hospitalization)
  Sender: FDA-Public Use
  Company Number: CTI_0817_2005

PATIENT
  Age: 60 Year
  Sex: Male
  Weight: 70 kg

DRUGS (4)
  1. ZILEUTON [Suspect]
     Indication: NON-SMALL CELL LUNG CANCER
     Dosage: 2400 MG QID PO
     Route: 048
     Dates: start: 20040331
  2. GEMCITABINE [Suspect]
     Indication: NON-SMALL CELL LUNG CANCER
     Dosage: 1000 MG/M2 QWK IV
     Route: 042
     Dates: start: 20040331
  3. CARBOPLATIN [Suspect]
     Indication: NON-SMALL CELL LUNG CANCER
     Dosage: 375 MG ONCE IV
     Route: 042
     Dates: start: 20040331
  4. CELECOXIB [Suspect]
     Indication: NON-SMALL CELL LUNG CANCER
     Dosage: 400 MG BID PO
     Route: 048
     Dates: start: 20040331

REACTIONS (11)
  - ASTHENIA [None]
  - BACTERIA URINE [None]
  - BACTERIAL INFECTION [None]
  - DECREASED APPETITE [None]
  - FATIGUE [None]
  - HAEMOLYTIC ANAEMIA [None]
  - HYPOTENSION [None]
  - INTERNATIONAL NORMALISED RATIO INCREASED [None]
  - OTITIS EXTERNA [None]
  - SEPSIS SYNDROME [None]
  - URINARY TRACT INFECTION [None]
